FAERS Safety Report 9283745 (Version 1)
Quarter: 2013Q2

REPORT INFORMATION
  Report Type: Spontaneous
  Country: CA (occurrence: None)
  Receive Date: 20130506
  Receipt Date: 20130506
  Transmission Date: 20140414
  Serious: Yes (Hospitalization, Other)
  Sender: FDA-Public Use
  Company Number: SYM-2013-03185

PATIENT
  Age: 60 Year
  Sex: Female

DRUGS (18)
  1. DILTIAZEM [Suspect]
     Indication: PRODUCT USED FOR UNKNOWN INDICATION
  2. ENBREL [Suspect]
     Indication: RHEUMATOID ARTHRITIS
     Dates: start: 20130303
  3. LEVOTHYROXINE SODIUM (LEVOTHYROXINE SODIUM)(LEVOTHYROXINE SODIUM) [Concomitant]
  4. DOMPERIDONE (DOMPERIDONE)(DOMPERIDONE) [Concomitant]
  5. CLONAZEPAM (CLONAZEPAM)(CLONAZEPAM) [Concomitant]
  6. CYCLOBENZAPRINE (CYCLOBENZAPRINE)(CYCLOBENZAPRINE) [Concomitant]
  7. ESTRACE (ESTRADIOL)(ESTRADIOL) [Concomitant]
  8. FLUOXETINE (FLUOXETINE)(FLUOXETINE) [Concomitant]
  9. GABAPENTIN (GABAPENTIN)(GABAPENTIN) [Concomitant]
  10. HYDROMORPHONE (HYDROMORPHONE)(HYDROMORPHONE) [Concomitant]
  11. LOPERAMIDE (LOPERAMIDE)(LOPERAMIDE) [Concomitant]
  12. METFORMIN (METFORMIN)(METFORMIN) [Concomitant]
  13. OMEPRAZOLE (OMEPRAZOLE)(OMEPRAZOLE) [Concomitant]
  14. ELMIRON (PENTOSAN POLYSULFATE SODIUM)(PENTOSAN [Concomitant]
  15. SULCRATE (SUCRALFATE)(SUCRALFATE) [Concomitant]
  16. TELMISARTAN (TELMISARTAN)(TELMISARTAN) [Concomitant]
  17. VITAMIN C (ASCORBIC ACID) (ASCORBIC ACID) [Concomitant]
  18. VITAMIN D (ERGOCALCIFEROL)(ERGOCALCIFEROL) [Concomitant]

REACTIONS (4)
  - Bacterial infection [None]
  - Hypertension [None]
  - Hallucination [None]
  - Diarrhoea [None]
